FAERS Safety Report 13299843 (Version 1)
Quarter: 2017Q1

REPORT INFORMATION
  Report Type: Spontaneous
  Country: US (occurrence: US)
  Receive Date: 20170306
  Receipt Date: 20170306
  Transmission Date: 20170428
  Serious: Yes (Hospitalization)
  Sender: FDA-Public Use
  Company Number: US-B.I. PHARMACEUTICALS,INC./RIDGEFIELD-2017-BI-011569

PATIENT
  Age: 78 Year
  Sex: Female

DRUGS (15)
  1. NITROGLYCERINE [Concomitant]
     Active Substance: NITROGLYCERIN
     Indication: CHEST PAIN
     Dosage: 1 PATCH Q 24 HOURS;  FORM STRENGTH: 0.2 MG; FORMULATION: PATCH
     Route: 061
  2. ASPIRIN. [Concomitant]
     Active Substance: ASPIRIN
     Indication: PRODUCT USED FOR UNKNOWN INDICATION
     Dosage: 2 TABLETS 1 TIME DAILY;  FORM STRENGTH: 81 MG; FORMULATION: TABLET
     Route: 048
  3. LIPITOR [Concomitant]
     Active Substance: ATORVASTATIN CALCIUM
     Indication: BLOOD CHOLESTEROL INCREASED
     Dosage: 1 TABLET 1 TIME DAILY;  FORM STRENGTH: 80 MG; FORMULATION: TABLET
     Route: 048
  4. METOPROLOL TARTRATE. [Concomitant]
     Active Substance: METOPROLOL TARTRATE
     Indication: HYPERTENSION
     Dosage: 1 TABLET BID;  FORM STRENGTH: 25 MG; FORMULATION: TABLET
     Route: 048
  5. LISINOPRIL. [Concomitant]
     Active Substance: LISINOPRIL
     Indication: HYPERTENSION
     Dosage: 1 TABLET 1 TIME DAILY;  FORM STRENGTH: 40 MG; FORMULATION: TABLET
     Route: 048
  6. NITROGLYCERINE [Concomitant]
     Active Substance: NITROGLYCERIN
     Indication: CHEST PAIN
     Dosage: PRN;  FORM STRENGTH: 0.4 MG; FORMULATION: TABLET
     Route: 065
  7. VITAMIN E [Concomitant]
     Active Substance: .ALPHA.-TOCOPHEROL
     Indication: PRODUCT USED FOR UNKNOWN INDICATION
     Dosage: 1 CAPSULE DAILY;  FORM STRENGTH: 400 MG; FORMULATION: CAPSULE
     Route: 048
  8. XANAX [Concomitant]
     Active Substance: ALPRAZOLAM
     Indication: ANXIETY
     Dosage: 1 TABLET BID;  FORM STRENGTH: 0.25 MG; FORMULATION: TABLET
     Route: 048
  9. PRADAXA [Suspect]
     Active Substance: DABIGATRAN ETEXILATE MESYLATE
     Indication: ATRIAL FIBRILLATION
     Dosage: 1 CAPSULE BID;  FORM STRENGTH: 75 MG; FORMULATION: CAPSULE? ADMINISTRATION CORRECT? YES ?ACTION(S) T
     Route: 048
     Dates: start: 2015, end: 201611
  10. PRADAXA [Suspect]
     Active Substance: DABIGATRAN ETEXILATE MESYLATE
     Dosage: 1 CAPSULE 1 TIME DAILY;  FORM STRENGTH: 75 MG; FORMULATION: CAPSULE? ADMINISTRATION CORRECT? YES ?AC
     Route: 048
     Dates: start: 201611
  11. PROAIR HFA [Concomitant]
     Active Substance: ALBUTEROL SULFATE
     Indication: CHRONIC OBSTRUCTIVE PULMONARY DISEASE
     Dosage: 2 INAHALATIONS TID;  FORMULATION: INHALATION AEROSOL;
     Route: 055
  12. METFORMIN [Concomitant]
     Active Substance: METFORMIN HYDROCHLORIDE
     Indication: DIABETES MELLITUS
     Dosage: 1 TABLET 1 TIME DAILY;  FORM STRENGTH: 750 MG; FORMULATION: TABLET
     Route: 048
     Dates: end: 201611
  13. VITAMIN D3 [Concomitant]
     Active Substance: CHOLECALCIFEROL
     Indication: PRODUCT USED FOR UNKNOWN INDICATION
     Dosage: 1 TABLET 1 TIME DAILY;  FORM STRENGTH: 1000 MG; FORMULATION: TABLET
     Route: 048
  14. TORSEMIDE. [Concomitant]
     Active Substance: TORSEMIDE
     Indication: FLUID RETENTION
     Dosage: 2 TABLETS 1 TIME DAILY EVERY OTHER DAY;  FORM STRENGTH: 10 MG; FORMULATION: TABLET
     Route: 048
  15. LANTUS [Concomitant]
     Active Substance: INSULIN GLARGINE
     Indication: DIABETES MELLITUS
     Dosage: Q HS;  FORM STRENGTH: 20 UNITS; FORMULATION: SUBCUTANEOUS
     Route: 058
     Dates: start: 201611

REACTIONS (4)
  - Rectal haemorrhage [Recovered/Resolved]
  - Dyspnoea [Recovered/Resolved]
  - Haemorrhoids [Unknown]
  - Rectal haemorrhage [Recovered/Resolved]

NARRATIVE: CASE EVENT DATE: 201609
